FAERS Safety Report 6424239-9 (Version None)
Quarter: 2009Q4

REPORT INFORMATION
  Report Type: 
  Country: None (occurrence: None)
  Receive Date: 20091102
  Receipt Date: 20091021
  Transmission Date: 20100525
  Serious: Yes (Other)
  Sender: FDA-Public Use
  Company Number: DE-PFIZER INC-2009286203

PATIENT
  Sex: Male

DRUGS (1)
  1. INSPRA [Suspect]
     Dosage: 150 MG, DAILY
     Route: 048
     Dates: start: 20090101

REACTIONS (3)
  - ASTHENIA [None]
  - DEPRESSION [None]
  - GENERAL PHYSICAL HEALTH DETERIORATION [None]
